FAERS Safety Report 14448096 (Version 1)
Quarter: 2018Q1

REPORT INFORMATION
  Report Type: Spontaneous
  Country: JP (occurrence: JP)
  Receive Date: 20180126
  Receipt Date: 20180126
  Transmission Date: 20180509
  Serious: Yes (Other)
  Sender: FDA-Public Use
  Company Number: JP-ELI_LILLY_AND_COMPANY-JP201801010767

PATIENT
  Age: 75 Year
  Sex: Male

DRUGS (3)
  1. MINOCYCLINE HYDROCHLORIDE. [Concomitant]
     Active Substance: MINOCYCLINE HYDROCHLORIDE
     Indication: PROPHYLAXIS
     Dosage: UNK, UNKNOWN
     Route: 065
  2. HIRUDOID [Concomitant]
     Active Substance: GLYCOSAMINOGLYCANS
     Indication: PROPHYLAXIS
     Dosage: UNK, UNKNOWN
     Route: 065
  3. ERBITUX [Suspect]
     Active Substance: CETUXIMAB
     Indication: HEAD AND NECK CANCER
     Dosage: UNK, UNKNOWN
     Route: 041
     Dates: start: 20160726, end: 20160916

REACTIONS (10)
  - Radiation skin injury [Recovered/Resolved]
  - Inner ear disorder [Not Recovered/Not Resolved]
  - White blood cell count decreased [Recovered/Resolved]
  - Stomatitis [Recovered/Resolved]
  - Dermatitis acneiform [Recovered/Resolved]
  - Pharyngeal inflammation [Recovered/Resolved]
  - Dysgeusia [Recovering/Resolving]
  - Dry mouth [Not Recovered/Not Resolved]
  - Deafness [Not Recovered/Not Resolved]
  - Platelet count decreased [Not Recovered/Not Resolved]

NARRATIVE: CASE EVENT DATE: 20160810
